FAERS Safety Report 12838174 (Version 6)
Quarter: 2017Q1

REPORT INFORMATION
  Report Type: Report from Study
  Country: US (occurrence: US)
  Receive Date: 20161012
  Receipt Date: 20170117
  Transmission Date: 20170428
  Serious: Yes (Hospitalization, Other)
  Sender: FDA-Public Use
  Company Number: US-GILEAD-2016-0237541

PATIENT
  Age: 83 Year
  Sex: Male

DRUGS (5)
  1. AMBRISENTAN [Suspect]
     Active Substance: AMBRISENTAN
     Indication: CHRONIC OBSTRUCTIVE PULMONARY DISEASE
     Dosage: 5 MG, UNK
     Route: 048
  2. WARFARIN [Concomitant]
     Active Substance: WARFARIN
  3. AMIODARONE [Concomitant]
     Active Substance: AMIODARONE
  4. AMBRISENTAN [Suspect]
     Active Substance: AMBRISENTAN
     Indication: PULMONARY FIBROSIS
  5. AMBRISENTAN [Suspect]
     Active Substance: AMBRISENTAN
     Indication: PULMONARY HYPERTENSION
     Dosage: 10 MG, QD
     Route: 065
     Dates: start: 20150402

REACTIONS (6)
  - Wheezing [Unknown]
  - Cardiac pacemaker insertion [Recovered/Resolved]
  - Influenza [Recovered/Resolved]
  - Atrial fibrillation [Unknown]
  - Sinus node dysfunction [Unknown]
  - Cough [Unknown]

NARRATIVE: CASE EVENT DATE: 201611
